FAERS Safety Report 11874799 (Version 1)
Quarter: 2015Q4

REPORT INFORMATION
  Report Type: Spontaneous
  Country: US (occurrence: None)
  Receive Date: 20151228
  Receipt Date: 20151228
  Transmission Date: 20160305
  Serious: Yes (Life-Threatening, Hospitalization)
  Sender: FDA-Public Use
  Company Number: None

PATIENT
  Age: 86 Year
  Sex: Male

DRUGS (1)
  1. TOVIAZ [Suspect]
     Active Substance: FESOTERODINE FUMARATE
     Indication: HYPERTONIC BLADDER
     Dosage: 1 PILL
     Route: 048
     Dates: start: 20151221, end: 20151222

REACTIONS (2)
  - Upper gastrointestinal haemorrhage [None]
  - Volvulus [None]

NARRATIVE: CASE EVENT DATE: 20151223
